FAERS Safety Report 15771824 (Version 1)
Quarter: 2018Q4

REPORT INFORMATION
  Report Type: Report from Study
  Country: US (occurrence: US)
  Receive Date: 20181228
  Receipt Date: 20181228
  Transmission Date: 20190205
  Serious: Yes (Other)
  Sender: FDA-Public Use
  Company Number: US-PFIZER INC-2018466491

PATIENT
  Age: 47 Year
  Sex: Female

DRUGS (2)
  1. IBRANCE [Suspect]
     Active Substance: PALBOCICLIB
     Indication: BREAST CANCER FEMALE
     Dosage: 125 MG, CYCLIC (125 MG DAILY FOR 21 DAYS AND OFF 7 DAYS )
     Route: 048
     Dates: start: 20181031
  2. LETROZOLE. [Concomitant]
     Active Substance: LETROZOLE
     Dosage: UNK, DAILY

REACTIONS (6)
  - White blood cell count decreased [Unknown]
  - Insomnia [Unknown]
  - Pharyngitis streptococcal [Unknown]
  - Bone marrow failure [Unknown]
  - Nasopharyngitis [Unknown]
  - Hot flush [Unknown]

NARRATIVE: CASE EVENT DATE: 2018
